FAERS Safety Report 8562319-2 (Version None)
Quarter: 2012Q3

REPORT INFORMATION
  Report Type: 
  Country: None (occurrence: None)
  Receive Date: 20120802
  Receipt Date: 20120712
  Transmission Date: 20120928
  Serious: Yes (Hospitalization)
  Sender: FDA-Public Use
  Company Number: US-AMGEN-USASP2012043549

PATIENT
  Sex: Female

DRUGS (1)
  1. ENBREL [Suspect]
     Indication: RHEUMATOID ARTHRITIS
     Dosage: 25 MG, 2 TIMES/WK
     Dates: start: 20110701

REACTIONS (5)
  - INFECTION [None]
  - FATIGUE [None]
  - JOINT SWELLING [None]
  - UPPER RESPIRATORY TRACT INFECTION [None]
  - PYREXIA [None]
